FAERS Safety Report 17775395 (Version 2)
Quarter: 2021Q1

REPORT INFORMATION
  Report Type: Report from Study
  Country: US (occurrence: US)
  Receive Date: 20200513
  Receipt Date: 20210222
  Transmission Date: 20210419
  Serious: No
  Sender: FDA-Public Use
  Company Number: US-ACADIA PHARMACEUTICALS INC.-ACA-2020-PIM-000811

PATIENT
  Sex: Male

DRUGS (5)
  1. ROPINIROLE. [Concomitant]
     Active Substance: ROPINIROLE
  2. CLONAZEPAM. [Concomitant]
     Active Substance: CLONAZEPAM
  3. NUPLAZID [Suspect]
     Active Substance: PIMAVANSERIN TARTRATE
     Indication: PARKINSON^S DISEASE
     Dosage: 34 MILLIGRAM, QD
     Route: 048
     Dates: start: 201902, end: 202009
  4. DUOPA [Concomitant]
     Active Substance: CARBIDOPA\LEVODOPA
  5. RYTARY [Concomitant]
     Active Substance: CARBIDOPA\LEVODOPA

REACTIONS (2)
  - Dyspepsia [Unknown]
  - Complication associated with device [Recovered/Resolved]
